FAERS Safety Report 9073406 (Version 1)
Quarter: 2013Q1

REPORT INFORMATION
  Report Type: Report from Study
  Country: US (occurrence: US)
  Receive Date: 20130129
  Receipt Date: 20130129
  Transmission Date: 20140127
  Serious: No
  Sender: FDA-Public Use
  Company Number: US-ABBOTT-12P-163-0921376-00

PATIENT
  Sex: Female
  Weight: 124.85 kg

DRUGS (10)
  1. HUMIRA 40 MG/0.8 ML PEN [Suspect]
     Indication: CROHN^S DISEASE
     Dosage: LOADING DOSE
     Dates: start: 20120211, end: 20120211
  2. ZANTAC [Concomitant]
     Indication: GASTRITIS PROPHYLAXIS
  3. CELEXA [Concomitant]
     Indication: DEPRESSION
  4. COZAAR [Concomitant]
     Indication: HYPERTENSION
  5. AMARYL [Concomitant]
     Indication: DIABETES MELLITUS
  6. ASACOL [Concomitant]
     Indication: CROHN^S DISEASE
  7. PRAVACHOL [Concomitant]
     Indication: BLOOD CHOLESTEROL INCREASED
  8. GLUCOPHAGE [Concomitant]
     Indication: DIABETES MELLITUS
  9. LOFIBRA [Concomitant]
     Indication: BLOOD CHOLESTEROL INCREASED
  10. TYZANADINE [Concomitant]
     Indication: MUSCLE SPASMS

REACTIONS (3)
  - Diarrhoea [Recovered/Resolved]
  - Muscle spasms [Recovered/Resolved]
  - Retching [Recovered/Resolved]
